FAERS Safety Report 7661181-X (Version None)
Quarter: 2011Q3

REPORT INFORMATION
  Report Type: 
  Country: None (occurrence: None)
  Receive Date: 20110805
  Receipt Date: 20101112
  Transmission Date: 20111222
  Serious: No
  Sender: FDA-Public Use
  Company Number: US-ABBOTT-10P-163-0685192-00

PATIENT
  Sex: Female
  Weight: 90.8 kg

DRUGS (9)
  1. MAXAIR [Concomitant]
     Indication: INHALATION THERAPY
     Route: 055
  2. IBUPROFEN [Concomitant]
     Indication: PROPHYLAXIS
  3. MAXZIDE [Concomitant]
     Indication: DIURETIC THERAPY
     Dosage: 0.5 TABLET  M-W-F
     Route: 048
  4. TYLENOL-500 [Concomitant]
     Indication: ARTHRALGIA
     Route: 048
  5. NAPROXEN (ALEVE) [Concomitant]
     Indication: ARTHRALGIA
     Route: 048
  6. NIASPAN [Suspect]
     Indication: LOW DENSITY LIPOPROTEIN INCREASED
     Route: 048
     Dates: start: 20100801, end: 20101108
  7. ADVAIR HFA [Concomitant]
     Indication: ASTHMA
     Dosage: 2 PUFFS BID
     Route: 055
  8. IBUPROFEN [Concomitant]
     Indication: FLUSHING
     Route: 048
  9. ACCOLATE [Concomitant]
     Indication: ASTHMA
     Route: 048

REACTIONS (4)
  - MYALGIA [None]
  - PARAESTHESIA [None]
  - PALPITATIONS [None]
  - FLUSHING [None]
